FAERS Safety Report 5772056-5 (Version None)
Quarter: 2008Q2

REPORT INFORMATION
  Report Type: 
  Country: None (occurrence: None)
  Receive Date: 20080612
  Receipt Date: 20080612
  Transmission Date: 20081010
  Serious: Yes (Hospitalization)
  Sender: FDA-Public Use
  Company Number: None

PATIENT
  Age: 60 Year
  Sex: Female

DRUGS (3)
  1. FERRLECIT [Suspect]
     Indication: ANAEMIA
     Dosage: 250MG ONCE DAILY IV
     Route: 042
     Dates: start: 20080606, end: 20080606
  2. FERRLECIT [Suspect]
     Indication: THROMBOCYTHAEMIA
     Dosage: 250MG ONCE DAILY IV
     Route: 042
     Dates: start: 20080606, end: 20080606
  3. SODIUM CHLORIDE 0.9% [Concomitant]

REACTIONS (6)
  - ABDOMINAL PAIN [None]
  - HYPOTENSION [None]
  - INFUSION RELATED REACTION [None]
  - NAUSEA [None]
  - THERAPEUTIC RESPONSE DECREASED [None]
  - VOMITING [None]
